FAERS Safety Report 14818498 (Version 1)
Quarter: 2018Q2

REPORT INFORMATION
  Report Type: Spontaneous
  Country: IT (occurrence: IT)
  Receive Date: 20180427
  Receipt Date: 20180427
  Transmission Date: 20180711
  Serious: Yes (Other)
  Sender: FDA-Public Use
  Company Number: IT-AUROBINDO-AUR-APL-2018-022769

PATIENT
  Age: 40 Year
  Sex: Female

DRUGS (1)
  1. VENLAFAXINE [Suspect]
     Active Substance: VENLAFAXINE HYDROCHLORIDE
     Indication: PRODUCT USED FOR UNKNOWN INDICATION
     Dosage: 600 MILLIGRAM IN TOTAL
     Route: 048
     Dates: start: 20180219, end: 20180219

REACTIONS (5)
  - Tremor [Recovered/Resolved]
  - Vomiting [Recovered/Resolved]
  - Drug abuse [Recovered/Resolved]
  - Vision blurred [Recovered/Resolved]
  - Fall [Recovered/Resolved]

NARRATIVE: CASE EVENT DATE: 20180219
